FAERS Safety Report 5852217-7 (Version None)
Quarter: 2008Q3

REPORT INFORMATION
  Report Type: 
  Country: None (occurrence: None)
  Receive Date: 20080821
  Receipt Date: 20080819
  Transmission Date: 20090109
  Serious: Yes (Hospitalization, Other)
  Sender: FDA-Public Use
  Company Number: US-BRISTOL-MYERS SQUIBB COMPANY-14281240

PATIENT
  Age: 55 Year
  Sex: Male

DRUGS (9)
  1. ERBITUX [Suspect]
     Indication: HEAD AND NECK CANCER
     Dosage: LAST DOSE GIVEN ON 11JUL08.
     Route: 042
     Dates: start: 20080523, end: 20080523
  2. RADIATION THERAPY [Suspect]
     Indication: HEAD AND NECK CANCER
     Dosage: 1 DOSAGE FORM=5400CGY
  3. PAXIL [Concomitant]
     Route: 048
  4. DILAUDID [Concomitant]
     Route: 048
     Dates: end: 20080711
  5. KYTRIL [Concomitant]
     Indication: PREMEDICATION
  6. TAGAMET [Concomitant]
     Indication: PREMEDICATION
  7. BENADRYL [Concomitant]
     Indication: PREMEDICATION
  8. ETHYOL [Concomitant]
     Indication: PREMEDICATION
  9. ULTRAM [Concomitant]

REACTIONS (2)
  - ENCEPHALOPATHY [None]
  - STAPHYLOCOCCAL INFECTION [None]
